FAERS Safety Report 25677453 (Version 1)
Quarter: 2025Q3

REPORT INFORMATION
  Report Type: Spontaneous
  Country: US (occurrence: None)
  Receive Date: 20250813
  Receipt Date: 20250813
  Transmission Date: 20251020
  Serious: Yes (Hospitalization)
  Sender: FDA-CTU
  Company Number: None

PATIENT
  Age: 64 Year
  Sex: Female

DRUGS (1)
  1. CAPECITABINE [Suspect]
     Active Substance: CAPECITABINE
     Dosage: FREQUENCY : DAILY;?

REACTIONS (6)
  - Abdominal pain [None]
  - Back pain [None]
  - Diarrhoea [None]
  - Vomiting [None]
  - Cystitis noninfective [None]
  - Therapy cessation [None]
